FAERS Safety Report 9276600 (Version 1)
Quarter: 2013Q2

REPORT INFORMATION
  Report Type: Spontaneous
  Country: US (occurrence: None)
  Receive Date: 20130501
  Receipt Date: 20130501
  Transmission Date: 20140414
  Serious: Yes (Other)
  Sender: FDA-Public Use
  Company Number: DSU-2013-03051

PATIENT
  Age: 67 Year
  Sex: Female
  Weight: 117.94 kg

DRUGS (6)
  1. TRIBENZOR (OLMESARTAN MEDOXOMIL, AMLODIPINE, HYDROCHLOROTHIAZINE) (TABLET) [Suspect]
     Indication: HYPERTENSION
     Route: 048
     Dates: start: 2012
  2. CHEMOTHERAPY [Suspect]
     Indication: BREAST CANCER
     Dates: start: 201302
  3. PRAVASTATIN (PRAVASTATIN) (20 MILLIGRAM) (PRAVASTATIN) [Concomitant]
  4. PROMETHAZINE (PROMETHAZINE) (PROMETHAZINE) [Concomitant]
  5. ONDANSETRON (ONDANSETRON) (ONDANSETRON) [Concomitant]
  6. BETAMETHASONE (BETAMETHASONE) (BETAMETHASONE) [Concomitant]

REACTIONS (3)
  - Breast cancer [None]
  - Myocardial infarction [None]
  - Nausea [None]
